FAERS Safety Report 8139874-X (Version None)
Quarter: 2012Q1

REPORT INFORMATION
  Report Type: 
  Country: None (occurrence: None)
  Receive Date: 20120215
  Receipt Date: 20120208
  Transmission Date: 20120608
  Serious: Yes (Life-Threatening)
  Sender: FDA-Public Use
  Company Number: US-ALLERGAN-1116216US

PATIENT
  Age: 6 Year
  Sex: Female
  Weight: 90.703 kg

DRUGS (9)
  1. COUMADIN [Concomitant]
  2. SANCTURA [Suspect]
     Dosage: UNK
     Dates: start: 20050709
  3. FOSAMAX [Concomitant]
     Indication: PRODUCT USED FOR UNKNOWN INDICATION
  4. LOPRESSOR [Concomitant]
  5. LIPITOR [Concomitant]
  6. SANCTURA [Suspect]
     Indication: HYPERTONIC BLADDER
     Dosage: 20 MG, QD
     Route: 048
     Dates: start: 20050709, end: 20050721
  7. NORVASC [Concomitant]
     Indication: PRODUCT USED FOR UNKNOWN INDICATION
  8. HYZAAR [Concomitant]
     Indication: PRODUCT USED FOR UNKNOWN INDICATION
  9. LEVOXYL [Concomitant]

REACTIONS (10)
  - CONFUSIONAL STATE [None]
  - FALL [None]
  - ROAD TRAFFIC ACCIDENT [None]
  - TACHYCARDIA [None]
  - SLEEP DISORDER [None]
  - CONSTIPATION [None]
  - FEELING ABNORMAL [None]
  - HALLUCINATION, VISUAL [None]
  - CONTUSION [None]
  - TREMOR [None]
